FAERS Safety Report 25791402 (Version 1)
Quarter: 2025Q3

REPORT INFORMATION
  Report Type: Spontaneous
  Country: TW (occurrence: TW)
  Receive Date: 20250911
  Receipt Date: 20250911
  Transmission Date: 20251020
  Serious: Yes (Hospitalization, Disabling, Other)
  Sender: NOVARTIS
  Company Number: TW-002147023-NVSC2025TW139152

PATIENT
  Age: 45 Year
  Sex: Female

DRUGS (2)
  1. ELTROMBOPAG OLAMINE [Suspect]
     Active Substance: ELTROMBOPAG OLAMINE
     Indication: Product used for unknown indication
     Route: 065
     Dates: start: 20230128
  2. ELTROMBOPAG OLAMINE [Suspect]
     Active Substance: ELTROMBOPAG OLAMINE
     Route: 065
     Dates: start: 20231023

REACTIONS (7)
  - Deep vein thrombosis [Recovered/Resolved with Sequelae]
  - Oedema peripheral [Unknown]
  - Venous occlusion [Unknown]
  - Peripheral coldness [Unknown]
  - Swelling [Unknown]
  - Skin discolouration [Unknown]
  - Pedal pulse [Unknown]

NARRATIVE: CASE EVENT DATE: 20230818
